FAERS Safety Report 6637660-0 (Version None)
Quarter: 2010Q1

REPORT INFORMATION
  Report Type: 
  Country: None (occurrence: None)
  Receive Date: 20100317
  Receipt Date: 20100302
  Transmission Date: 20100710
  Serious: Yes (Disabling, Other)
  Sender: FDA-Public Use
  Company Number: US-TYCO HEALTHCARE/MALLINCKRODT-T201000711

PATIENT
  Age: 76 Year
  Sex: Male

DRUGS (2)
  1. MORPHINE [Suspect]
     Indication: DRUG USE FOR UNKNOWN INDICATION
     Dosage: 3.59 MG/24 HOURS
     Route: 037
  2. WARFARIN SODIUM [Concomitant]
     Indication: PULMONARY EMBOLISM
     Dosage: UNK

REACTIONS (3)
  - FOREIGN BODY REACTION [None]
  - MUSCULAR WEAKNESS [None]
  - PARAPLEGIA [None]
